FAERS Safety Report 25315995 (Version 1)
Quarter: 2025Q2

REPORT INFORMATION
  Report Type: Report from Study
  Country: IT (occurrence: IT)
  Receive Date: 20250515
  Receipt Date: 20250515
  Transmission Date: 20250716
  Serious: Yes (Other)
  Sender: ACCORD
  Company Number: None

PATIENT
  Age: 16 Year
  Sex: Female
  Weight: 42 kg

DRUGS (2)
  1. QUETIAPINE [Interacting]
     Active Substance: QUETIAPINE
     Indication: Irritability
     Dates: start: 20240308, end: 20241122
  2. DIAZEPAM [Interacting]
     Active Substance: DIAZEPAM
     Indication: Anxiety
     Dates: start: 20240404, end: 20240515

REACTIONS (5)
  - Irritability [Recovered/Resolved]
  - Hallucination, auditory [Recovered/Resolved]
  - Drug ineffective [Recovered/Resolved]
  - Off label use [Recovered/Resolved]
  - Drug interaction [Recovered/Resolved]

NARRATIVE: CASE EVENT DATE: 20240308
